FAERS Safety Report 22316317 (Version 1)
Quarter: 2023Q2

REPORT INFORMATION
  Report Type: Spontaneous
  Country: BE (occurrence: BE)
  Receive Date: 20230513
  Receipt Date: 20230513
  Transmission Date: 20230721
  Serious: Yes (Other)
  Sender: FDA-Public Use
  Company Number: BE-MLMSERVICE-20230427-4248166-1

PATIENT
  Age: 37 Year
  Sex: Female

DRUGS (1)
  1. AMOXICILLIN\CLAVULANIC ACID [Suspect]
     Active Substance: AMOXICILLIN\CLAVULANIC ACID
     Indication: Pneumonia
     Dosage: 1 DOSAGE FORM, 3 TIMES A DAY
     Route: 065

REACTIONS (5)
  - Drug hypersensitivity [Recovered/Resolved]
  - Dyspnoea [Recovered/Resolved]
  - Erythema [Recovered/Resolved]
  - Lip swelling [Recovered/Resolved]
  - Urticaria [Recovered/Resolved]
